APPROVED DRUG PRODUCT: CLONIDINE
Active Ingredient: CLONIDINE
Strength: 0.3MG/24HR
Dosage Form/Route: SYSTEM;TRANSDERMAL
Application: A076157 | Product #003
Applicant: INGENUS PHARMACEUTICALS LLC
Approved: Aug 18, 2009 | RLD: No | RS: No | Type: DISCN